FAERS Safety Report 8238972-X (Version None)
Quarter: 2012Q1

REPORT INFORMATION
  Report Type: 
  Country: None (occurrence: None)
  Receive Date: 20120327
  Receipt Date: 20120321
  Transmission Date: 20120608
  Serious: Yes (Hospitalization, Other)
  Sender: FDA-Public Use
  Company Number: PHEH2012US006512

PATIENT
  Age: 52 Year
  Sex: Female

DRUGS (8)
  1. GILENYA [Suspect]
     Indication: RELAPSING-REMITTING MULTIPLE SCLEROSIS
     Dosage: 0.5 MG, QD
     Route: 048
     Dates: start: 20110101
  2. LISINOPRIL [Concomitant]
  3. XANOFLEX [Concomitant]
  4. MAXALT [Concomitant]
  5. DITROPAN [Concomitant]
  6. PROVIGIL [Concomitant]
  7. AMLODIPINE [Concomitant]
  8. ZOLOFT [Concomitant]

REACTIONS (3)
  - ABASIA [None]
  - URINARY TRACT INFECTION [None]
  - ESCHERICHIA TEST POSITIVE [None]
